FAERS Safety Report 18968102 (Version 1)
Quarter: 2021Q1

REPORT INFORMATION
  Report Type: Spontaneous
  Country: US (occurrence: US)
  Receive Date: 20210304
  Receipt Date: 20210304
  Transmission Date: 20210420
  Serious: No
  Sender: FDA-Public Use
  Company Number: US-JNJFOC-20210302778

PATIENT
  Age: 88 Year
  Sex: Female

DRUGS (1)
  1. IMODIUM MULTI?SYMPTOM RELIEF [Suspect]
     Active Substance: DIMETHICONE\LOPERAMIDE HYDROCHLORIDE
     Indication: PROPHYLAXIS
     Dosage: 2 TABLETS ONCE A DAY
     Route: 048
     Dates: start: 20210226

REACTIONS (3)
  - Asthenia [Recovering/Resolving]
  - Off label use [Unknown]
  - Product use in unapproved indication [Unknown]

NARRATIVE: CASE EVENT DATE: 20210226
